FAERS Safety Report 5373283-1 (Version None)
Quarter: 2007Q2

REPORT INFORMATION
  Report Type: 
  Country: None (occurrence: None)
  Receive Date: 20070626
  Receipt Date: 20070626
  Transmission Date: 20071010
  Serious: Yes (Other)
  Sender: FDA-Public Use
  Company Number: None

PATIENT
  Sex: Male

DRUGS (5)
  1. REVLIMID [Suspect]
     Indication: MULTIPLE MYELOMA
     Dosage: 25MG DAILY 21D/28D PO
     Route: 048
  2. DEXAMETHASONE 0.5MG TAB [Concomitant]
  3. AREDIA [Concomitant]
  4. METHADONE HCL [Concomitant]
  5. OMEPRAZOLE [Concomitant]

REACTIONS (6)
  - ARTHRALGIA [None]
  - CHEST PAIN [None]
  - DRUG INTOLERANCE [None]
  - LOBAR PNEUMONIA [None]
  - MUSCLE SPASMS [None]
  - PRURITUS [None]
